FAERS Safety Report 7780206-4 (Version None)
Quarter: 2011Q3

REPORT INFORMATION
  Report Type: 
  Country: None (occurrence: None)
  Receive Date: 20110927
  Receipt Date: 20110927
  Transmission Date: 20111222
  Serious: Yes (Other)
  Sender: FDA-Public Use
  Company Number: None

PATIENT
  Age: 35 Year
  Sex: Female
  Weight: 68.038 kg

DRUGS (1)
  1. SYNTHROID [Suspect]
     Indication: HYPOTHYROIDISM
     Dosage: 75 MCG
     Route: 048
     Dates: start: 20110901, end: 20110927

REACTIONS (12)
  - ALOPECIA [None]
  - RASH GENERALISED [None]
  - MALAISE [None]
  - ABDOMINAL DISTENSION [None]
  - PALPITATIONS [None]
  - AMNESIA [None]
  - ABDOMINAL PAIN [None]
  - INSOMNIA [None]
  - WEIGHT INCREASED [None]
  - DIZZINESS [None]
  - DYSPNOEA [None]
  - HEADACHE [None]
